FAERS Safety Report 7362201-2 (Version None)
Quarter: 2011Q1

REPORT INFORMATION
  Report Type: 
  Country: None (occurrence: None)
  Receive Date: 20110318
  Receipt Date: 20110316
  Transmission Date: 20110831
  Serious: Yes (Death, Other)
  Sender: FDA-Public Use
  Company Number: US-AMGEN-QUU441324

PATIENT
  Age: 58 Year
  Sex: Female

DRUGS (4)
  1. DANAZOL [Concomitant]
     Dosage: UNK UNK, UNK
     Dates: start: 20090930
  2. NPLATE [Suspect]
     Indication: IDIOPATHIC THROMBOCYTOPENIC PURPURA
     Dosage: UNK UNK, UNK
     Dates: start: 20091002
  3. IMMUNOGLOBULINS [Concomitant]
     Dosage: UNK UNK, UNK
     Dates: start: 20090804, end: 20090928
  4. AZATHIOPRINE [Concomitant]
     Dosage: UNK UNK, UNK
     Dates: start: 20090910

REACTIONS (7)
  - DEATH [None]
  - PLASMACYTOSIS [None]
  - PNEUMONIA [None]
  - LEUKOCYTOSIS [None]
  - RESPIRATORY FAILURE [None]
  - NEUTROPHILIA [None]
  - ANAEMIA [None]
